FAERS Safety Report 17687207 (Version 1)
Quarter: 2020Q2

REPORT INFORMATION
  Report Type: Spontaneous
  Country: CN (occurrence: CN)
  Receive Date: 20200421
  Receipt Date: 20200421
  Transmission Date: 20200714
  Serious: Yes (Other)
  Sender: FDA-Public Use
  Company Number: CN-ROCHE-2585562

PATIENT
  Age: 64 Year
  Sex: Male

DRUGS (3)
  1. XELODA [Suspect]
     Active Substance: CAPECITABINE
     Dosage: LAST CHEMOTHERAPY: 16/APR/2017
     Route: 048
  2. XELODA [Suspect]
     Active Substance: CAPECITABINE
     Indication: TUMOUR ULCERATION
     Dosage: 10/OCT/2016, 08/NOV/2016, 07/DEC/2016, 09/JAN/2017 AND 09/FEB/2017
     Route: 048
     Dates: start: 20160912
  3. OXALIPLATIN. [Concomitant]
     Active Substance: OXALIPLATIN
     Indication: TUMOUR ULCERATION
     Dosage: 10/OCT/2016, 08/NOV/2016, 07/DEC/2016, 09/JAN/2017 AND 09/FEB/2017?LAST CHEMOTHERAPY: 16/APR/2017
     Route: 041
     Dates: start: 20160912

REACTIONS (5)
  - Bone marrow failure [Unknown]
  - Palmar-plantar erythrodysaesthesia syndrome [Unknown]
  - Nausea [Unknown]
  - Liver injury [Unknown]
  - Alopecia [Unknown]
